FAERS Safety Report 25941029 (Version 1)
Quarter: 2025Q4

REPORT INFORMATION
  Report Type: Spontaneous
  Country: US (occurrence: None)
  Receive Date: 20251018
  Receipt Date: 20251018
  Transmission Date: 20260118
  Serious: No
  Sender: FDA-CTU
  Company Number: None

PATIENT

DRUGS (1)
  1. VTAMA [Suspect]
     Active Substance: TAPINAROF
     Indication: Eczema
     Dosage: OTHER QUANTITY : 60 GRAM;?FREQUENCY : DAILY;?
     Route: 061
     Dates: start: 20251016, end: 20251017

REACTIONS (2)
  - Application site reaction [None]
  - Urticaria [None]

NARRATIVE: CASE EVENT DATE: 20251016
